FAERS Safety Report 16306863 (Version 1)
Quarter: 2019Q2

REPORT INFORMATION
  Report Type: Spontaneous
  Country: US (occurrence: US)
  Receive Date: 20190513
  Receipt Date: 20190513
  Transmission Date: 20190711
  Serious: Yes (Other)
  Sender: FDA-Public Use
  Company Number: US-ALLERGAN-1919789US

PATIENT
  Sex: Female

DRUGS (1)
  1. TESTOSTERONE UNK [Suspect]
     Active Substance: TESTOSTERONE
     Indication: TRANSGENDER HORMONAL THERAPY
     Dosage: UNK
     Route: 065

REACTIONS (8)
  - Trichotillomania [Unknown]
  - Rash papular [Unknown]
  - Pseudofolliculitis [Unknown]
  - Off label use [Unknown]
  - Rash pustular [Unknown]
  - Dermatillomania [Unknown]
  - Skin ulcer [Unknown]
  - Scar [Unknown]
